FAERS Safety Report 17683366 (Version 1)
Quarter: 2020Q2

REPORT INFORMATION
  Report Type: Spontaneous
  Country: US (occurrence: US)
  Receive Date: 20200420
  Receipt Date: 20200420
  Transmission Date: 20200714
  Serious: Yes (Hospitalization)
  Sender: FDA-Public Use
  Company Number: US-TEVA-2020-US-1223176

PATIENT
  Sex: Male
  Weight: 118.4 kg

DRUGS (9)
  1. RASAGILINE. [Suspect]
     Active Substance: RASAGILINE
     Route: 065
  2. ATORVASTATIN [Concomitant]
     Active Substance: ATORVASTATIN
     Route: 065
  3. LEVOTHYROXINE. [Concomitant]
     Active Substance: LEVOTHYROXINE
     Route: 065
  4. GOCOVRI [Suspect]
     Active Substance: AMANTADINE
     Indication: DYSKINESIA
     Route: 065
     Dates: start: 20191227, end: 20200102
  5. METOPROLOL TARTRATE. [Concomitant]
     Active Substance: METOPROLOL TARTRATE
     Route: 065
  6. GOCOVRI [Suspect]
     Active Substance: AMANTADINE
     Dosage: AT BEDTIME
     Route: 048
     Dates: start: 20200103, end: 2020
  7. METFORMIN [Concomitant]
     Active Substance: METFORMIN HYDROCHLORIDE
     Route: 065
  8. CARBIDOPA/LEVODOPA [Concomitant]
     Active Substance: CARBIDOPA\LEVODOPA
     Route: 065
  9. HYDROCHLOROTHIAZIDE. [Concomitant]
     Active Substance: HYDROCHLOROTHIAZIDE
     Route: 065

REACTIONS (6)
  - Dry mouth [Not Recovered/Not Resolved]
  - Hallucination [Unknown]
  - Insomnia [Unknown]
  - Adverse drug reaction [Unknown]
  - Dyskinesia [Not Recovered/Not Resolved]
  - Nausea [Not Recovered/Not Resolved]

NARRATIVE: CASE EVENT DATE: 2020
